FAERS Safety Report 8074612-0 (Version None)
Quarter: 2012Q1

REPORT INFORMATION
  Report Type: 
  Country: None (occurrence: None)
  Receive Date: 20120126
  Receipt Date: 20120117
  Transmission Date: 20120608
  Serious: Yes (Hospitalization)
  Sender: FDA-Public Use
  Company Number: US-ABBOTT-12P-163-0895319-00

PATIENT
  Age: 66 Year
  Sex: Female

DRUGS (2)
  1. VASOTEC [Concomitant]
     Indication: HYPERTENSION
  2. HUMIRA [Suspect]
     Indication: RHEUMATOID ARTHRITIS
     Route: 058
     Dates: start: 20030101

REACTIONS (3)
  - NASOPHARYNGITIS [None]
  - INFLUENZA [None]
  - MALAISE [None]
